FAERS Safety Report 20430446 (Version 2)
Quarter: 2022Q4

REPORT INFORMATION
  Report Type: Report from Study
  Country: FR (occurrence: FR)
  Receive Date: 20220204
  Receipt Date: 20221209
  Transmission Date: 20230112
  Serious: Yes (Hospitalization, Other)
  Sender: FDA-Public Use
  Company Number: FR-SERVIER-S20008557

PATIENT

DRUGS (6)
  1. PEGASPARGASE [Suspect]
     Active Substance: PEGASPARGASE
     Indication: Acute lymphocytic leukaemia
     Dosage: 2400 IU, (D8, D36, D64).
     Route: 042
     Dates: start: 20200629
  2. VINCRISTINE [Suspect]
     Active Substance: VINCRISTINE
     Indication: Acute lymphocytic leukaemia
     Dosage: 1.4 MG (D1, D8, D29, D36, D57, D64)
     Route: 042
     Dates: start: 20200622
  3. DEXAMETHASONE [Suspect]
     Active Substance: DEXAMETHASONE
     Indication: Acute lymphocytic leukaemia
     Dosage: 0.5 MG (D1 TO D5, D29 TO D33, D57 TO D61),
     Route: 048
     Dates: start: 20200622
  4. METHOTREXATE [Suspect]
     Active Substance: METHOTREXATE
     Indication: Acute lymphocytic leukaemia
     Dosage: 12 MG  (D2, D30, D58),
     Route: 037
     Dates: start: 20200623
  5. METHOTREXATE [Suspect]
     Active Substance: METHOTREXATE
     Dosage: 23.7 MG (D5,D15, D30, D45, D52)
     Route: 048
     Dates: start: 20200626
  6. MERCAPTOPURINE [Suspect]
     Active Substance: MERCAPTOPURINE
     Indication: Acute lymphocytic leukaemia
     Dosage: 50 MG (D1 TO D22, D29 TO D50, D57 TO D78),
     Route: 048
     Dates: start: 20200622

REACTIONS (2)
  - Drug hypersensitivity [Recovered/Resolved]
  - Neuralgia [Recovered/Resolved]

NARRATIVE: CASE EVENT DATE: 20200629
